FAERS Safety Report 10073049 (Version 2)
Quarter: 2014Q2

REPORT INFORMATION
  Report Type: Spontaneous
  Country: NZ (occurrence: NZ)
  Receive Date: 20140411
  Receipt Date: 20140424
  Transmission Date: 20141212
  Serious: Yes (Hospitalization)
  Sender: FDA-Public Use
  Company Number: NZ-PFIZER INC-2014097336

PATIENT
  Age: 10 Year
  Sex: Male
  Weight: 30.7 kg

DRUGS (6)
  1. GENOTROPIN [Suspect]
     Dosage: 1 MG, 1X/DAY
     Dates: start: 20131205
  2. CEFACLOR [Concomitant]
     Dosage: 250 MG, DAILY
  3. GENTAMICIN [Concomitant]
     Indication: URINARY TRACT INFECTION
     Dosage: 80MG IN 2ML, 1ML (40MG) IN 250ML OF NORMAL SALINE, USUALLY APPROXIMATELY 1 X 2 MONTHLY
  4. ROCALTROL [Concomitant]
     Dosage: 0.25 UG, DAILY
  5. SALBUTAMOL [Concomitant]
     Dosage: UNK
     Route: 055
  6. FLIXOTIDE ^GLAXO^ [Concomitant]
     Dosage: 50MCG/DOSE, 1 TO 2 DOSES TWICE DAILY
     Route: 055

REACTIONS (4)
  - Viral infection [Recovered/Resolved]
  - Groin pain [Unknown]
  - Pyrexia [Recovered/Resolved]
  - Vomiting [Recovered/Resolved]
